FAERS Safety Report 9480792 (Version 2)
Quarter: 2013Q3

REPORT INFORMATION
  Report Type: Spontaneous
  Country: US (occurrence: US)
  Receive Date: 20130828
  Receipt Date: 20130828
  Transmission Date: 20140515
  Serious: Yes (Other)
  Sender: FDA-Public Use
  Company Number: US-AMGEN-KDL109289

PATIENT
  Age: 43 Year
  Sex: Female

DRUGS (5)
  1. ENBREL [Suspect]
     Indication: PSORIASIS
     Dosage: 25 MG, 2 TIMES/WK
     Route: 065
     Dates: start: 200303
  2. CALCIUM [Concomitant]
  3. POTASSIUM [Concomitant]
  4. MULTIVITAMINS [Concomitant]
  5. ESCITALOPRAM [Concomitant]
     Dosage: 10 MG, QD

REACTIONS (3)
  - Breast cancer stage II [Recovered/Resolved]
  - Psoriasis [Unknown]
  - Condition aggravated [Unknown]
